FAERS Safety Report 4613203-8 (Version None)
Quarter: 2005Q1

REPORT INFORMATION
  Report Type: 
  Country: None (occurrence: None)
  Receive Date: 20050315
  Receipt Date: 20050309
  Transmission Date: 20050727
  Serious: Yes (Other)
  Sender: FDA-Public Use
  Company Number: 2004116797

PATIENT
  Sex: Male

DRUGS (1)
  1. TAHOR (ATORVASTATIN) [Suspect]
     Indication: HYPERCHOLESTEROLAEMIA
     Dates: end: 20040501

REACTIONS (6)
  - ERECTILE DYSFUNCTION [None]
  - FATIGUE [None]
  - LYMPHOMA [None]
  - MOTOR DYSFUNCTION [None]
  - NEUROPATHY [None]
  - PARANEOPLASTIC SYNDROME [None]
